FAERS Safety Report 7338280-5 (Version None)
Quarter: 2011Q1

REPORT INFORMATION
  Report Type: 
  Country: None (occurrence: None)
  Receive Date: 20110308
  Receipt Date: 20110303
  Transmission Date: 20110831
  Serious: Yes (Other)
  Sender: FDA-Public Use
  Company Number: GB-PFIZER INC-2011047556

PATIENT
  Age: 16 Year
  Sex: Female

DRUGS (3)
  1. LEVOTHYROXINE [Concomitant]
     Indication: HYPOTHYROIDISM
     Dosage: 50 UG, 1X/DAY
     Route: 048
     Dates: start: 20100101
  2. ETHOSUXIMIDE [Suspect]
     Indication: PETIT MAL EPILEPSY
     Dosage: 250 MG, 2X/DAY
     Route: 048
     Dates: start: 20100212
  3. VENTOLIN [Concomitant]
     Indication: ASTHMA
     Dosage: 100 UG, AS NEEDED
     Route: 055
     Dates: start: 20070101

REACTIONS (5)
  - PALPITATIONS [None]
  - CHEST PAIN [None]
  - FEELING HOT [None]
  - THROAT TIGHTNESS [None]
  - DYSPNOEA [None]
